FAERS Safety Report 10167749 (Version 1)
Quarter: 2014Q2

REPORT INFORMATION
  Report Type: Spontaneous
  Country: US (occurrence: US)
  Receive Date: 20140512
  Receipt Date: 20140512
  Transmission Date: 20141212
  Serious: No
  Sender: FDA-Public Use
  Company Number: US-LUNDBECK-DKLU1094420

PATIENT
  Age: 2 Year
  Sex: Male

DRUGS (2)
  1. SABRIL     (TABLET) [Suspect]
     Indication: TUBEROUS SCLEROSIS
     Route: 048
     Dates: start: 20120919, end: 20131014
  2. SABRIL     (TABLET) [Suspect]
     Route: 048
     Dates: start: 20131014

REACTIONS (1)
  - Incorrect dose administered [Unknown]
